FAERS Safety Report 7576258-7 (Version None)
Quarter: 2011Q2

REPORT INFORMATION
  Report Type: 
  Country: None (occurrence: None)
  Receive Date: 20110628
  Receipt Date: 20110112
  Transmission Date: 20111010
  Serious: Yes (Hospitalization)
  Sender: FDA-Public Use
  Company Number: US-BAYER-201035197NA

PATIENT
  Age: 34 Year
  Sex: Female
  Weight: 83.9 kg

DRUGS (4)
  1. LEXAPRO [Concomitant]
     Dosage: 10 MG, UNK
  2. MOTRIN [Concomitant]
  3. ADVIL LIQUI-GELS [Concomitant]
  4. YAZ [Suspect]
     Indication: CONTRACEPTION
     Dosage: UNK UNK, QD
     Route: 048
     Dates: start: 20090401, end: 20090901

REACTIONS (4)
  - VOMITING [None]
  - PAIN [None]
  - MALAISE [None]
  - BILIARY COLIC [None]
